FAERS Safety Report 9903596 (Version 1)
Quarter: 2014Q1

REPORT INFORMATION
  Report Type: Spontaneous
  Country: US (occurrence: US)
  Receive Date: 20140217
  Receipt Date: 20140217
  Transmission Date: 20141002
  Serious: No
  Sender: FDA-Public Use
  Company Number: US-009507513-1402USA004853

PATIENT
  Sex: 0

DRUGS (3)
  1. VYTORIN [Suspect]
     Indication: LIPIDS ABNORMAL
     Route: 048
  2. SIMVASTATIN TABLETS, USP [Suspect]
     Indication: LIPIDS ABNORMAL
     Route: 048
  3. LIPITOR [Suspect]
     Indication: LIPIDS ABNORMAL

REACTIONS (1)
  - Drug ineffective [Unknown]
